FAERS Safety Report 4700053-7 (Version None)
Quarter: 2005Q2

REPORT INFORMATION
  Report Type: 
  Country: None (occurrence: None)
  Receive Date: 20050627
  Receipt Date: 20050622
  Transmission Date: 20051028
  Serious: Yes (Other)
  Sender: FDA-Public Use
  Company Number: US-GLAXOSMITHKLINE-A0563964A

PATIENT

DRUGS (3)
  1. LAMICTAL [Suspect]
     Indication: EPILEPSY
  2. TEGRETOL [Concomitant]
  3. PHENOBARBITAL [Concomitant]

REACTIONS (2)
  - DRUG EXPOSURE DURING PREGNANCY [None]
  - UMBILICAL CORD ABNORMALITY [None]
